FAERS Safety Report 20622179 (Version 1)
Quarter: 2022Q1

REPORT INFORMATION
  Report Type: Report from Study
  Country: CA (occurrence: CA)
  Receive Date: 20220322
  Receipt Date: 20220322
  Transmission Date: 20220423
  Serious: Yes (Other)
  Sender: FDA-Public Use
  Company Number: CA-OTSUKA-2021_028571

PATIENT
  Sex: Female

DRUGS (1)
  1. ARIPIPRAZOLE [Suspect]
     Active Substance: ARIPIPRAZOLE
     Indication: Product used for unknown indication
     Dosage: 400 MG, Q3 WEEKS
     Route: 030

REACTIONS (5)
  - Hallucination, auditory [Not Recovered/Not Resolved]
  - Stress [Unknown]
  - Paranoia [Unknown]
  - Anxiety [Unknown]
  - Inappropriate schedule of product administration [Unknown]
